FAERS Safety Report 5376217-9 (Version None)
Quarter: 2007Q3

REPORT INFORMATION
  Report Type: 
  Country: None (occurrence: None)
  Receive Date: 20070702
  Receipt Date: 20070621
  Transmission Date: 20080115
  Serious: Yes (Life-Threatening, Hospitalization, Disabling)
  Sender: FDA-Public Use
  Company Number: US-MERCK-0704USA05289

PATIENT
  Age: 81 Year
  Sex: Female
  Weight: 87 kg

DRUGS (4)
  1. JANUVIA [Suspect]
     Indication: TYPE 2 DIABETES MELLITUS
     Route: 048
     Dates: start: 20070101
  2. ASPIRIN [Concomitant]
     Route: 065
  3. VALSARTAN [Concomitant]
     Route: 065
  4. AMARYL [Concomitant]
     Route: 065

REACTIONS (5)
  - ELECTROLYTE IMBALANCE [None]
  - ENZYME ABNORMALITY [None]
  - GASTROINTESTINAL DISORDER [None]
  - HYPERCALCAEMIA [None]
  - RENAL DISORDER [None]
